FAERS Safety Report 9451584 (Version 1)
Quarter: 2013Q3

REPORT INFORMATION
  Report Type: Report from Study
  Country: US (occurrence: US)
  Receive Date: 20130811
  Receipt Date: 20130811
  Transmission Date: 20140515
  Serious: Yes (Other)
  Sender: FDA-Public Use
  Company Number: US-CUBIST PHARMACEUTICAL, INC.-2013CBST000234

PATIENT
  Age: 37 Year
  Sex: Female
  Weight: 85 kg

DRUGS (5)
  1. DAPTOMYCIN [Suspect]
     Indication: FEBRILE NEUTROPENIA
     Dosage: 500 MG, Q24H
     Route: 042
     Dates: start: 20110728, end: 20110808
  2. DAPTOMYCIN [Suspect]
     Indication: OFF LABEL USE
     Dosage: 5.88 MG/KG, Q24H
     Route: 042
     Dates: start: 20110728, end: 20110808
  3. CEFEPIME [Suspect]
     Indication: FEBRILE NEUTROPENIA
     Dosage: 2 G, Q8H
     Route: 042
     Dates: start: 20110724, end: 20110727
  4. VANCOMYCIN [Suspect]
     Indication: FEBRILE NEUTROPENIA
     Dosage: 1 G, Q12H
     Route: 042
     Dates: start: 20110724, end: 20110728
  5. PRIMAXIN [Concomitant]
     Indication: FEBRILE NEUTROPENIA
     Dosage: 500 MG, Q6H
     Route: 042
     Dates: start: 20110727, end: 20110809

REACTIONS (1)
  - Rash [Unknown]
